FAERS Safety Report 18088874 (Version 1)
Quarter: 2020Q3

REPORT INFORMATION
  Report Type: Report from Study
  Country: ZA (occurrence: ZA)
  Receive Date: 20200729
  Receipt Date: 20200729
  Transmission Date: 20201103
  Serious: Yes (Other)
  Sender: FDA-Public Use
  Company Number: PHHY2018ZA186215

PATIENT
  Age: 49 Year
  Sex: Female

DRUGS (2)
  1. DESFERAL [Suspect]
     Active Substance: DEFEROXAMINE MESYLATE
     Dosage: 6 VIALS 3 X WEEK
     Route: 065
     Dates: start: 1980
  2. DESFERAL [Suspect]
     Active Substance: DEFEROXAMINE MESYLATE
     Indication: THALASSAEMIA
     Dosage: 5 VIALS 5X WEEK VIA SYRINGE PUMP
     Route: 065
     Dates: start: 1972

REACTIONS (2)
  - Allergic transfusion reaction [Recovering/Resolving]
  - Serum ferritin increased [Unknown]

NARRATIVE: CASE EVENT DATE: 201905
